FAERS Safety Report 23414943 (Version 1)
Quarter: 2024Q1

REPORT INFORMATION
  Report Type: Other
  Country: GB (occurrence: GB)
  Receive Date: 20240118
  Receipt Date: 20240118
  Transmission Date: 20240410
  Serious: Yes (Other)
  Sender: FDA-Public Use
  Company Number: None

PATIENT

DRUGS (6)
  1. SERTRALINE [Suspect]
     Active Substance: SERTRALINE HYDROCHLORIDE
     Indication: Ill-defined disorder
     Dosage: 0.5 DOSAGE FORM, QD (INCREASE TO ONE DAILY AFTER)
     Route: 065
     Dates: start: 20231208
  2. SERTRALINE [Suspect]
     Active Substance: SERTRALINE HYDROCHLORIDE
     Dosage: UNK
     Route: 065
     Dates: start: 20231220
  3. MIRTAZAPINE [Concomitant]
     Active Substance: MIRTAZAPINE
     Indication: Ill-defined disorder
     Dosage: 1 DOSAGE FORM, HS, TAKE 1 TABLET EVERY NIGHT
     Route: 065
     Dates: start: 20231206, end: 20231208
  4. SERTRALINE [Concomitant]
     Active Substance: SERTRALINE HYDROCHLORIDE
     Indication: Ill-defined disorder
     Dosage: 0.5 DOSAGE FORM, QD, TAKE HALF DAILY AND INCREASE TO ONE DAILY AFTER
     Route: 065
     Dates: start: 20231208
  5. SERTRALINE [Concomitant]
     Active Substance: SERTRALINE HYDROCHLORIDE
     Dosage: 1 DOSAGE FORM, QD, TAKE HALF DAILY AND INCREASE TO ONE DAILY AFTER
     Route: 065
  6. ZOPICLONE [Concomitant]
     Active Substance: ZOPICLONE
     Indication: Ill-defined disorder
     Dosage: UNK, HS, ONE OR TWO TO BE TAKEN AT NIGHT AS REQUIRED, MA
     Route: 065
     Dates: start: 20231023, end: 20231024

REACTIONS (3)
  - Mania [Recovered/Resolved]
  - Abnormal behaviour [Unknown]
  - Euphoric mood [Unknown]

NARRATIVE: CASE EVENT DATE: 20231220
